FAERS Safety Report 8267216-8 (Version None)
Quarter: 2012Q2

REPORT INFORMATION
  Report Type: 
  Country: None (occurrence: None)
  Receive Date: 20120409
  Receipt Date: 20120330
  Transmission Date: 20120825
  Serious: Yes (Hospitalization)
  Sender: FDA-Public Use
  Company Number: US-BAYER-2011-118218

PATIENT
  Age: 29 Year
  Sex: Female
  Weight: 61.224 kg

DRUGS (10)
  1. IBUPROFEN (ADVIL) [Concomitant]
  2. WELLBUTRIN [Concomitant]
     Indication: DEPRESSION
     Dosage: 300 MG, UNK
     Dates: start: 20020101
  3. YAZ [Suspect]
  4. BRACEN [Concomitant]
  5. AFOBAM [Concomitant]
  6. PLAN B [Concomitant]
     Dosage: UNK
     Dates: end: 20090528
  7. YAZ [Suspect]
     Indication: PREMENSTRUAL SYNDROME
     Dosage: UNK
     Route: 048
     Dates: start: 20080501, end: 20081201
  8. FLUOXETINE [Concomitant]
     Dosage: 200 MG, DAILY
  9. NAPROXEN [Concomitant]
     Indication: MUSCLE SPASMS
     Dosage: 2 TABS
  10. ASPIRIN [Concomitant]
     Dosage: UNK
     Dates: start: 20081201

REACTIONS (4)
  - CEREBROVASCULAR ACCIDENT [None]
  - BASAL GANGLIA INFARCTION [None]
  - CEREBRAL INFARCTION [None]
  - PAIN [None]
